FAERS Safety Report 19117395 (Version 2)
Quarter: 2022Q2

REPORT INFORMATION
  Report Type: Spontaneous
  Country: FR (occurrence: FR)
  Receive Date: 20210409
  Receipt Date: 20220520
  Transmission Date: 20220720
  Serious: Yes (Life-Threatening)
  Sender: FDA-Public Use
  Company Number: None

PATIENT
  Age: 60 Year
  Sex: Male
  Weight: 118 kg

DRUGS (9)
  1. PANTOPRAZOLE [Suspect]
     Active Substance: PANTOPRAZOLE
     Indication: Prophylaxis
     Dosage: 20MG , FREQUENCY TIME : 1 DAY
     Route: 048
     Dates: end: 20210313
  2. CANDESARTAN CILEXETIL [Suspect]
     Active Substance: CANDESARTAN CILEXETIL
     Indication: Hypertension
     Dosage: 4MG , FREQUENCY TIME : 1 DAY
     Route: 048
     Dates: end: 20210313
  3. METHOTREXATE SODIUM [Suspect]
     Active Substance: METHOTREXATE SODIUM
     Indication: Rheumatoid arthritis
     Dosage: 1DF , STRENGTH : 25 MG/0.5 ML , FREQUENCY TIME : 1 WEEK
     Route: 048
     Dates: end: 20210313
  4. FLECAINIDE [Suspect]
     Active Substance: FLECAINIDE
     Indication: Atrial fibrillation
     Dosage: 2DF, SCORED TABLET , STRENGTH : 100 MG , FREQUENCY TIME : 1 DAY
     Route: 048
     Dates: end: 20210313
  5. FOLIC ACID [Suspect]
     Active Substance: FOLIC ACID
     Indication: Vitamin supplementation
     Dosage: 10MG , FREQUENCY TIME : 1 WEEKS
     Route: 048
     Dates: end: 20210313
  6. ASTRAZENECA COVID-19 VACCINE [Suspect]
     Active Substance: AZD-1222
     Indication: COVID-19 immunisation
     Dosage: COVID-19 VACCINE ASTRAZENECA, SUSPENSION INJECTABLE. VACCIN COVID-19 (CHADOX1-S [RECOMBINANT])
     Route: 030
     Dates: start: 20210313, end: 20210313
  7. POTASSIUM CHLORIDE [Suspect]
     Active Substance: POTASSIUM CHLORIDE
     Indication: Mineral supplementation
     Dosage: 2DF, FREQUENCY TIME : 1 DAY
     Route: 048
     Dates: end: 20210313
  8. XARELTO [Suspect]
     Active Substance: RIVAROXABAN
     Indication: Cardiovascular event prophylaxis
     Dosage: 1DF , STRENGTH : 20 MG , FREQUENCY TIME : 1 DAY
     Route: 048
     Dates: end: 20210313
  9. NADOLOL [Suspect]
     Active Substance: NADOLOL
     Indication: Atrial fibrillation
     Dosage: 80MG ,  FREQUENCY TIME : 1 DAY
     Route: 048
     Dates: end: 20210313

REACTIONS (1)
  - Acute respiratory distress syndrome [Not Recovered/Not Resolved]

NARRATIVE: CASE EVENT DATE: 20210313
